FAERS Safety Report 12201914 (Version 2)
Quarter: 2016Q2

REPORT INFORMATION
  Report Type: Spontaneous
  Country: US (occurrence: US)
  Receive Date: 20160322
  Receipt Date: 20160517
  Transmission Date: 20160815
  Serious: No
  Sender: FDA-Public Use
  Company Number: US-009507513-1603USA008330

PATIENT

DRUGS (2)
  1. STERILE DILUENT [Suspect]
     Active Substance: WATER
     Dosage: UNK
     Dates: start: 2016
  2. VARIVAX [Suspect]
     Active Substance: VARICELLA-ZOSTER VIRUS STRAIN OKA/MERCK LIVE ANTIGEN
     Indication: PROPHYLAXIS
     Dates: start: 2016, end: 2016

REACTIONS (2)
  - Incorrect product storage [Unknown]
  - No adverse event [Unknown]

NARRATIVE: CASE EVENT DATE: 2016
